FAERS Safety Report 6463761-6 (Version None)
Quarter: 2009Q4

REPORT INFORMATION
  Report Type: 
  Country: None (occurrence: None)
  Receive Date: 20091201
  Receipt Date: 20091119
  Transmission Date: 20100525
  Serious: Yes (Other)
  Sender: FDA-Public Use
  Company Number: SE-JNJFOC-20091101065

PATIENT
  Sex: Male

DRUGS (2)
  1. INTELENCE [Suspect]
     Indication: DRUG USE FOR UNKNOWN INDICATION
     Route: 048
  2. VALACYCLOVIR [Concomitant]
     Indication: HERPES VIRUS INFECTION

REACTIONS (4)
  - ARTHRALGIA [None]
  - ERYTHEMA MULTIFORME [None]
  - OROPHARYNGEAL PAIN [None]
  - SENSORY DISTURBANCE [None]
